FAERS Safety Report 9716354 (Version 1)
Quarter: 2013Q4

REPORT INFORMATION
  Report Type: Spontaneous
  Country: SE (occurrence: SE)
  Receive Date: 20131127
  Receipt Date: 20131127
  Transmission Date: 20140711
  Serious: Yes (Other)
  Sender: FDA-Public Use
  Company Number: SE-SA-2013SA121856

PATIENT
  Age: 66 Year
  Sex: Male

DRUGS (7)
  1. MULTAQ [Suspect]
     Indication: PRODUCT USED FOR UNKNOWN INDICATION
     Route: 048
  2. IMDUR [Concomitant]
  3. OMEPRAZOLE [Concomitant]
  4. BISOPROLOL [Concomitant]
  5. CIPRALEX [Concomitant]
  6. TROMBYL [Concomitant]
  7. RAMIPRIL [Concomitant]

REACTIONS (2)
  - Blood thyroid stimulating hormone decreased [Not Recovered/Not Resolved]
  - Hyperthyroidism [Not Recovered/Not Resolved]
